FAERS Safety Report 25475141 (Version 1)
Quarter: 2025Q2

REPORT INFORMATION
  Report Type: Spontaneous
  Country: ES (occurrence: ES)
  Receive Date: 20250624
  Receipt Date: 20250624
  Transmission Date: 20250717
  Serious: Yes (Life-Threatening, Hospitalization)
  Sender: MYLAN
  Company Number: ES-ETHYPHARM-2025001690

PATIENT
  Age: 84 Year
  Sex: Male
  Weight: 71 kg

DRUGS (28)
  1. APIXABAN [Suspect]
     Active Substance: APIXABAN
     Indication: Product used for unknown indication
  2. APIXABAN [Suspect]
     Active Substance: APIXABAN
     Route: 065
  3. APIXABAN [Suspect]
     Active Substance: APIXABAN
     Route: 065
  4. APIXABAN [Suspect]
     Active Substance: APIXABAN
  5. BISOPROLOL [Suspect]
     Active Substance: BISOPROLOL
     Indication: Product used for unknown indication
  6. BISOPROLOL [Suspect]
     Active Substance: BISOPROLOL
     Route: 065
  7. BISOPROLOL [Suspect]
     Active Substance: BISOPROLOL
     Route: 065
  8. BISOPROLOL [Suspect]
     Active Substance: BISOPROLOL
  9. SITAGLIPTIN [Suspect]
     Active Substance: SITAGLIPTIN
     Indication: Product used for unknown indication
  10. SITAGLIPTIN [Suspect]
     Active Substance: SITAGLIPTIN
     Route: 065
  11. SITAGLIPTIN [Suspect]
     Active Substance: SITAGLIPTIN
     Route: 065
  12. SITAGLIPTIN [Suspect]
     Active Substance: SITAGLIPTIN
  13. SIMVASTATIN [Suspect]
     Active Substance: SIMVASTATIN
     Indication: Product used for unknown indication
  14. SIMVASTATIN [Suspect]
     Active Substance: SIMVASTATIN
     Route: 065
  15. SIMVASTATIN [Suspect]
     Active Substance: SIMVASTATIN
     Route: 065
  16. SIMVASTATIN [Suspect]
     Active Substance: SIMVASTATIN
  17. TRAZODONE [Suspect]
     Active Substance: TRAZODONE HYDROCHLORIDE
     Indication: Product used for unknown indication
  18. TRAZODONE [Suspect]
     Active Substance: TRAZODONE HYDROCHLORIDE
     Route: 065
  19. TRAZODONE [Suspect]
     Active Substance: TRAZODONE HYDROCHLORIDE
     Route: 065
  20. TRAZODONE [Suspect]
     Active Substance: TRAZODONE HYDROCHLORIDE
  21. FUROSEMIDE [Suspect]
     Active Substance: FUROSEMIDE
     Indication: Product used for unknown indication
  22. FUROSEMIDE [Suspect]
     Active Substance: FUROSEMIDE
     Route: 065
  23. FUROSEMIDE [Suspect]
     Active Substance: FUROSEMIDE
     Route: 065
  24. FUROSEMIDE [Suspect]
     Active Substance: FUROSEMIDE
  25. DIGOXIN [Suspect]
     Active Substance: DIGOXIN
     Indication: Product used for unknown indication
  26. DIGOXIN [Suspect]
     Active Substance: DIGOXIN
     Route: 065
  27. DIGOXIN [Suspect]
     Active Substance: DIGOXIN
     Route: 065
  28. DIGOXIN [Suspect]
     Active Substance: DIGOXIN

REACTIONS (2)
  - Asthenia [Recovering/Resolving]
  - Toxicity to various agents [Recovering/Resolving]
